FAERS Safety Report 4416962-2 (Version None)
Quarter: 2004Q3

REPORT INFORMATION
  Report Type: 
  Country: None (occurrence: None)
  Receive Date: 20040806
  Receipt Date: 20031110
  Transmission Date: 20050211
  Serious: Yes (Other)
  Sender: FDA-Public Use
  Company Number: US-GLAXOSMITHKLINE-A0439048A

PATIENT
  Age: 44 Year
  Sex: Male

DRUGS (1)
  1. STELAZINE [Suspect]
     Indication: ILL-DEFINED DISORDER
     Dosage: 10MG TWICE PER DAY
     Route: 048
     Dates: start: 19640101, end: 19920214

REACTIONS (1)
  - THROMBOCYTOPENIA [None]
